FAERS Safety Report 22090529 (Version 1)
Quarter: 2023Q1

REPORT INFORMATION
  Report Type: Spontaneous
  Country: JP (occurrence: JP)
  Receive Date: 20230313
  Receipt Date: 20230313
  Transmission Date: 20230417
  Serious: Yes (Death, Other)
  Sender: FDA-Public Use
  Company Number: JP-MSD-M2023-04693

PATIENT
  Age: 9 Decade
  Sex: Female

DRUGS (1)
  1. KEYTRUDA [Suspect]
     Active Substance: PEMBROLIZUMAB
     Indication: Ear neoplasm malignant
     Dosage: 200 MILLIGRAM, Q3W
     Route: 041
     Dates: start: 20220817, end: 20221104

REACTIONS (4)
  - Autoimmune thyroid disorder [Not Recovered/Not Resolved]
  - Malignant neoplasm progression [Fatal]
  - Rash [Recovered/Resolved]
  - Ear pain [Unknown]

NARRATIVE: CASE EVENT DATE: 20220823
